FAERS Safety Report 24160146 (Version 3)
Quarter: 2024Q3

REPORT INFORMATION
  Report Type: Spontaneous
  Country: GB (occurrence: GB)
  Receive Date: 20240801
  Receipt Date: 20240828
  Transmission Date: 20241017
  Serious: Yes (Other)
  Sender: LEO PHARM
  Company Number: None

PATIENT
  Sex: Male

DRUGS (6)
  1. PROTOPIC [Suspect]
     Active Substance: TACROLIMUS
     Indication: Product used for unknown indication
     Dosage: 0.1%
     Dates: start: 2023
  2. BETNOVATE [Suspect]
     Active Substance: BETAMETHASONE
     Indication: Product used for unknown indication
  3. BETAMETHASONE VALERATE\FUSIDIC ACID [Suspect]
     Active Substance: BETAMETHASONE VALERATE\FUSIDIC ACID
     Indication: Product used for unknown indication
     Dates: start: 20231207
  4. HYDROCORTISONE [Suspect]
     Active Substance: HYDROCORTISONE\HYDROCORTISONE ACETATE
     Indication: Product used for unknown indication
     Dosage: 1%
     Dates: start: 2023
  5. CLOBETASOL [Suspect]
     Active Substance: CLOBETASOL
     Indication: Product used for unknown indication
  6. EUMOVATE [Suspect]
     Active Substance: CLOBETASONE BUTYRATE
     Indication: Product used for unknown indication
     Dates: start: 2023

REACTIONS (8)
  - Erythema [Unknown]
  - Skin burning sensation [Unknown]
  - Suicidal ideation [Unknown]
  - Insomnia [Unknown]
  - Pain [Unknown]
  - Pruritus [Unknown]
  - Topical steroid withdrawal reaction [Unknown]
  - Pruritus [Unknown]
